FAERS Safety Report 5231587-7 (Version None)
Quarter: 2007Q1

REPORT INFORMATION
  Report Type: 
  Country: None (occurrence: None)
  Receive Date: 20070202
  Receipt Date: 20070129
  Transmission Date: 20070707
  Serious: Yes (Death, Other)
  Sender: FDA-Public Use
  Company Number: 163-21880-06081120

PATIENT
  Age: 75 Year
  Sex: Male

DRUGS (6)
  1. REVLIMID [Suspect]
     Indication: MYELODYSPLASTIC SYNDROME
     Dosage: 10 MG, 1 IN 1 D, ORAL
     Route: 048
     Dates: start: 20060812, end: 20060816
  2. LANOXIN [Concomitant]
  3. PLAVIX [Concomitant]
  4. DIOVAN [Concomitant]
  5. AMARYL [Concomitant]
  6. GEMFIBROZIL [Concomitant]

REACTIONS (5)
  - DISEASE PROGRESSION [None]
  - EYE SWELLING [None]
  - MYELODYSPLASTIC SYNDROME [None]
  - PRURITUS [None]
  - SWELLING FACE [None]
